FAERS Safety Report 19742651 (Version 1)
Quarter: 2021Q3

REPORT INFORMATION
  Report Type: Spontaneous
  Country: US (occurrence: US)
  Receive Date: 20210823
  Receipt Date: 20210823
  Transmission Date: 20211014
  Serious: Yes (Hospitalization)
  Sender: FDA-Public Use
  Company Number: None

PATIENT
  Sex: Female

DRUGS (2)
  1. VITRAKVI [Suspect]
     Active Substance: LAROTRECTINIB
     Indication: BENIGN BREAST NEOPLASM
     Dosage: ?          OTHER FREQUENCY:BID MON,WED,FRI;?
     Route: 048
     Dates: start: 20210705
  2. VITRAKVI [Suspect]
     Active Substance: LAROTRECTINIB
     Dosage: ?          OTHER FREQUENCY:QD TUE.THUR,SAT,SU;?
     Route: 048

REACTIONS (1)
  - Cholelithotomy [None]
